FAERS Safety Report 15023252 (Version 1)
Quarter: 2018Q2

REPORT INFORMATION
  Report Type: Spontaneous
  Country: CA (occurrence: CA)
  Receive Date: 20180602
  Receipt Date: 20180602
  Transmission Date: 20180711
  Serious: Yes (Hospitalization)
  Sender: FDA-Public Use
  Company Number: None

PATIENT
  Age: 7 Month
  Sex: Male
  Weight: 8 kg

DRUGS (2)
  1. D-DROPS [Concomitant]
  2. ANBESOL REGULAR STRENGTH GEL [Suspect]
     Active Substance: BENZOCAINE
     Indication: TEETHING
     Dosage: ?          QUANTITY:7 G GRAM(S);?
     Route: 048
     Dates: start: 20180501, end: 20180602

REACTIONS (4)
  - Cyanosis [None]
  - Cough [None]
  - Dyspnoea [None]
  - Product label issue [None]

NARRATIVE: CASE EVENT DATE: 20180602
